FAERS Safety Report 16069986 (Version 1)
Quarter: 2019Q1

REPORT INFORMATION
  Report Type: Spontaneous
  Country: US (occurrence: US)
  Receive Date: 20190314
  Receipt Date: 20190314
  Transmission Date: 20190418
  Serious: No
  Sender: FDA-Public Use
  Company Number: US-RICON PHARMA, LLC-RIC201902-000131

PATIENT
  Sex: Female

DRUGS (1)
  1. BETAMETHASONE VALERATE FOAM, 0.12% [Suspect]
     Active Substance: BETAMETHASONE VALERATE

REACTIONS (3)
  - Burning sensation [Recovered/Resolved]
  - Drug ineffective [Unknown]
  - Skin irritation [Recovered/Resolved]
